FAERS Safety Report 14163722 (Version 1)
Quarter: 2017Q4

REPORT INFORMATION
  Report Type: Report from Study
  Country: US (occurrence: US)
  Receive Date: 20171107
  Receipt Date: 20171107
  Transmission Date: 20180321
  Serious: Yes (Death)
  Sender: FDA-Public Use
  Company Number: US-ACCORD-060625

PATIENT
  Age: 100 Month
  Sex: Male

DRUGS (5)
  1. GRANULOCYTE COLONY STIMULATING [Concomitant]
     Active Substance: GRANULOCYTE COLONY-STIMULATING FACTOR NOS
  2. ETOPOSIDE. [Suspect]
     Active Substance: ETOPOSIDE
     Indication: ACUTE MYELOID LEUKAEMIA
     Dosage: CYCLICAL
     Route: 042
  3. CLOFARABINE. [Suspect]
     Active Substance: CLOFARABINE
     Indication: ACUTE MYELOID LEUKAEMIA
     Dosage: CYCLICAL
     Route: 042
  4. LENALIDOMIDE [Concomitant]
     Active Substance: LENALIDOMIDE
  5. CYCLOPHOSPHAMIDE/CYCLOPHOSPHAMIDE MONOHYDRATE [Suspect]
     Active Substance: CYCLOPHOSPHAMIDE
     Indication: ACUTE MYELOID LEUKAEMIA
     Dosage: CYCLICAL
     Route: 042

REACTIONS (3)
  - Off label use [Unknown]
  - Acute respiratory distress syndrome [Fatal]
  - Sepsis [Fatal]
